FAERS Safety Report 15795433 (Version 1)
Quarter: 2019Q1

REPORT INFORMATION
  Report Type: Spontaneous
  Country: TR (occurrence: TR)
  Receive Date: 20190107
  Receipt Date: 20190107
  Transmission Date: 20190417
  Serious: Yes (Other)
  Sender: FDA-Public Use
  Company Number: TR-TELIGENT, INC-IGIL20190003

PATIENT
  Age: 40 Year
  Sex: Female

DRUGS (4)
  1. CEFAZOLINE [Concomitant]
     Active Substance: CEFAZOLIN SODIUM
     Indication: PERITONITIS BACTERIAL
     Dosage: UNKNOWN
     Route: 042
  2. CEFTAZIDIME. [Suspect]
     Active Substance: CEFTAZIDIME
     Indication: SERRATIA INFECTION
     Dosage: UNKNOWN
     Route: 042
  3. CEFTAZIDIME. [Suspect]
     Active Substance: CEFTAZIDIME
     Indication: PERITONITIS BACTERIAL
     Dosage: UNKNOWN
     Route: 042
  4. CEFAZOLINE [Concomitant]
     Active Substance: CEFAZOLIN SODIUM
     Indication: SERRATIA INFECTION
     Dosage: UNKNOWN
     Route: 042

REACTIONS (3)
  - Peritonitis [Recovering/Resolving]
  - Drug ineffective [Unknown]
  - Treatment failure [Unknown]
